FAERS Safety Report 5426457-5 (Version None)
Quarter: 2007Q3

REPORT INFORMATION
  Report Type: 
  Country: None (occurrence: None)
  Receive Date: 20070827
  Receipt Date: 20070815
  Transmission Date: 20080115
  Serious: Yes (Other)
  Sender: FDA-Public Use
  Company Number: US-PFIZER INC-2007043336

PATIENT
  Sex: Female

DRUGS (3)
  1. CELEBREX [Suspect]
     Indication: ARTHRALGIA
  2. CELEBREX [Suspect]
     Indication: JOINT STIFFNESS
  3. CELEBREX [Suspect]
     Indication: MUSCLE RELAXANT THERAPY

REACTIONS (1)
  - CARDIOVASCULAR DISORDER [None]
